FAERS Safety Report 17708189 (Version 2)
Quarter: 2020Q2

REPORT INFORMATION
  Report Type: Spontaneous
  Country: US (occurrence: US)
  Receive Date: 20200425
  Receipt Date: 20200617
  Transmission Date: 20200714
  Serious: Yes (Hospitalization, Other)
  Sender: FDA-Public Use
  Company Number: US-ACCORD-179341

PATIENT
  Age: 18 Year
  Sex: Female

DRUGS (3)
  1. TOPIRAMATE. [Suspect]
     Active Substance: TOPIRAMATE
     Indication: WEIGHT DECREASED
     Dosage: 200 MG DAILY
  2. LAMOTRIGINE. [Concomitant]
     Active Substance: LAMOTRIGINE
  3. ATOMOXETINE/ATOMOXETINE HYDROCHLORIDE [Suspect]
     Active Substance: ATOMOXETINE HYDROCHLORIDE

REACTIONS (10)
  - Suicidal ideation [Unknown]
  - Fatigue [Recovered/Resolved]
  - Respiratory depression [Recovered/Resolved]
  - Intentional overdose [Unknown]
  - Lactic acidosis [Recovered/Resolved]
  - Renal tubular acidosis [Recovered/Resolved]
  - Headache [Recovered/Resolved]
  - Respiratory rate increased [Recovered/Resolved]
  - Electrocardiogram QT prolonged [Recovering/Resolving]
  - Off label use [Unknown]
